FAERS Safety Report 21886852 (Version 1)
Quarter: 2023Q1

REPORT INFORMATION
  Report Type: Spontaneous
  Country: US (occurrence: US)
  Receive Date: 20230119
  Receipt Date: 20230119
  Transmission Date: 20230418
  Serious: No
  Sender: FDA-Public Use
  Company Number: US-MYLANLABS-2022M1144716

PATIENT
  Age: 60 Year
  Sex: Female

DRUGS (2)
  1. FENTANYL TRANSDERMAL SYSTEM [Suspect]
     Active Substance: FENTANYL
     Indication: Bone pain
     Dosage: UNK (50 MCG/HOUR PATCH 1 PATCH EVERY 3 DAYS)
     Route: 062
     Dates: start: 20221209
  2. FENTANYL TRANSDERMAL SYSTEM [Suspect]
     Active Substance: FENTANYL
     Indication: Cancer pain

REACTIONS (3)
  - Application site rash [Recovering/Resolving]
  - Application site pain [Recovering/Resolving]
  - Application site pruritus [Recovering/Resolving]

NARRATIVE: CASE EVENT DATE: 20221209
